FAERS Safety Report 25741412 (Version 1)
Quarter: 2025Q3

REPORT INFORMATION
  Report Type: Spontaneous
  Country: GB (occurrence: GB)
  Receive Date: 20250829
  Receipt Date: 20250829
  Transmission Date: 20251021
  Serious: Yes (Other)
  Sender: BAYER HEALTHCARE PHARMACEUTICALS INC.
  Company Number: None

PATIENT
  Sex: Male

DRUGS (1)
  1. CIPROFLOXACIN [Suspect]
     Active Substance: CIPROFLOXACIN
     Indication: Prostatic specific antigen
     Dosage: 500 MG, QD
     Route: 048
     Dates: start: 20240829, end: 20250108

REACTIONS (5)
  - Medication error [Unknown]
  - Mental disorder [Recovered/Resolved]
  - Paraesthesia [Recovered/Resolved with Sequelae]
  - Tendonitis [Recovered/Resolved with Sequelae]
  - Tinnitus [Not Recovered/Not Resolved]

NARRATIVE: CASE EVENT DATE: 20240829
